FAERS Safety Report 5548383-3 (Version None)
Quarter: 2007Q4

REPORT INFORMATION
  Report Type: 
  Country: None (occurrence: None)
  Receive Date: 20071211
  Receipt Date: 20071016
  Transmission Date: 20080405
  Serious: Yes (Hospitalization)
  Sender: FDA-Public Use
  Company Number: IE-ABBOTT-07P-229-0376106-00

PATIENT
  Sex: Female
  Weight: 76.272 kg

DRUGS (5)
  1. HUMIRA [Suspect]
     Indication: RHEUMATOID ARTHRITIS
     Route: 058
     Dates: start: 20061001, end: 20070401
  2. HUMIRA [Suspect]
     Dates: start: 20020101, end: 20050101
  3. HUMIRA [Suspect]
     Dates: start: 20070801, end: 20070801
  4. HUMIRA [Suspect]
     Dates: start: 20071203
  5. METHOTREXATE [Concomitant]
     Indication: DRUG USE FOR UNKNOWN INDICATION
     Route: 048
     Dates: start: 20020101, end: 20070101

REACTIONS (4)
  - KIDNEY INFECTION [None]
  - NEUTROPHIL COUNT DECREASED [None]
  - URINARY TRACT INFECTION [None]
  - WHITE BLOOD CELL COUNT DECREASED [None]
